FAERS Safety Report 7669640-0 (Version None)
Quarter: 2011Q3

REPORT INFORMATION
  Report Type: 
  Country: None (occurrence: None)
  Receive Date: 20110808
  Receipt Date: 20110729
  Transmission Date: 20111222
  Serious: Yes (Hospitalization)
  Sender: FDA-Public Use
  Company Number: PHHY2011US45244

PATIENT
  Sex: Male

DRUGS (2)
  1. BLOOD AND BLOOD FORMING ORGANS [Concomitant]
  2. AFINITOR [Suspect]
     Indication: MALIGNANT URINARY TRACT NEOPLASM
     Dosage: 10 MG, DAILY
     Route: 048
     Dates: start: 20110316, end: 20110511

REACTIONS (2)
  - PULMONARY OEDEMA [None]
  - BLOOD GLUCOSE INCREASED [None]
